FAERS Safety Report 21384173 (Version 3)
Quarter: 2022Q4

REPORT INFORMATION
  Report Type: Spontaneous
  Country: PH (occurrence: PH)
  Receive Date: 20220928
  Receipt Date: 20221215
  Transmission Date: 20230113
  Serious: Yes (Death, Hospitalization, Other)
  Sender: FDA-Public Use
  Company Number: PH-AMGEN-PHLSP2022162450

PATIENT
  Sex: Female

DRUGS (1)
  1. MVASI [Suspect]
     Active Substance: BEVACIZUMAB-AWWB
     Indication: Product used for unknown indication
     Dosage: UNK
     Route: 042
     Dates: start: 20211128

REACTIONS (9)
  - Multiple organ dysfunction syndrome [Fatal]
  - Acute respiratory failure [Fatal]
  - Cervix carcinoma [Fatal]
  - Pneumonia [Fatal]
  - Immunodeficiency [Fatal]
  - Neoplasm [Not Recovered/Not Resolved]
  - Abdominal abscess [Unknown]
  - Infection [Not Recovered/Not Resolved]
  - Postoperative abscess [Unknown]

NARRATIVE: CASE EVENT DATE: 20211203
